FAERS Safety Report 18337611 (Version 2)
Quarter: 2020Q4

REPORT INFORMATION
  Report Type: Spontaneous
  Country: US (occurrence: US)
  Receive Date: 20201002
  Receipt Date: 20201024
  Transmission Date: 20210113
  Serious: No
  Sender: FDA-Public Use
  Company Number: US-009507513-2009USA011764

PATIENT
  Age: 83 Year
  Sex: Female

DRUGS (3)
  1. NASONEX [Concomitant]
     Active Substance: MOMETASONE FUROATE
     Dosage: UNK
  2. ASMANEX [Suspect]
     Active Substance: MOMETASONE FUROATE
     Indication: ASTHMA
     Dosage: UNK
     Dates: start: 2018
  3. ASMANEX [Suspect]
     Active Substance: MOMETASONE FUROATE
     Indication: ASTHMA
     Dosage: ONCE DAILY IN THE EVENING

REACTIONS (6)
  - Device malfunction [Unknown]
  - Poor quality device used [Unknown]
  - Cough [Unknown]
  - Device malfunction [Unknown]
  - Poor quality device used [Unknown]
  - Drug ineffective [Unknown]

NARRATIVE: CASE EVENT DATE: 2018
